FAERS Safety Report 25645053 (Version 1)
Quarter: 2025Q3

REPORT INFORMATION
  Report Type: Report from Study
  Country: JP (occurrence: JP)
  Receive Date: 20250805
  Receipt Date: 20250805
  Transmission Date: 20251020
  Serious: Yes (Other)
  Sender: BIOCRYST PHARMACEUTICALS
  Company Number: JP-BIOCRYST PHARMACEUTICALS, INC.-2025BCR00971

PATIENT
  Age: 49 Year
  Sex: Female
  Weight: 51 kg

DRUGS (2)
  1. ORLADEYO [Suspect]
     Active Substance: BEROTRALSTAT HYDROCHLORIDE
     Indication: Hereditary angioedema with C1 esterase inhibitor deficiency
     Dosage: 150 MG, QD
     Route: 048
     Dates: start: 20231228, end: 20240118
  2. FIRAZYR [Concomitant]
     Active Substance: ICATIBANT ACETATE
     Indication: Hereditary angioedema
     Dosage: 30 MG, QD
     Route: 065

REACTIONS (1)
  - Acute abdomen [Recovered/Resolved]

NARRATIVE: CASE EVENT DATE: 20240106
